FAERS Safety Report 9415288 (Version 2)
Quarter: 2013Q3

REPORT INFORMATION
  Report Type: Spontaneous
  Country: US (occurrence: US)
  Receive Date: 20130723
  Receipt Date: 20130807
  Transmission Date: 20140515
  Serious: Yes (Other)
  Sender: FDA-Public Use
  Company Number: US-ROXANE LABORATORIES, INC.-2013-RO-01190RO

PATIENT
  Sex: Female
  Weight: 49 kg

DRUGS (1)
  1. FUROSEMIDE [Suspect]

REACTIONS (5)
  - Fluid retention [Unknown]
  - Atrial fibrillation [Unknown]
  - Dyspnoea [Unknown]
  - Drug ineffective [Unknown]
  - Product quality issue [Unknown]
